FAERS Safety Report 23921307 (Version 1)
Quarter: 2024Q2

REPORT INFORMATION
  Report Type: Spontaneous
  Country: US (occurrence: US)
  Receive Date: 20240530
  Receipt Date: 20240530
  Transmission Date: 20240716
  Serious: No
  Sender: FDA-Public Use
  Company Number: US-SA-SAC20240523000672

PATIENT

DRUGS (1)
  1. LARONIDASE [Suspect]
     Active Substance: LARONIDASE
     Indication: Mucopolysaccharidosis I
     Dosage: 40.6 (UNIT NOT KNOWN), QW
     Route: 042
     Dates: start: 20040901

REACTIONS (2)
  - Aortic valve stenosis [Recovering/Resolving]
  - Aortic valve calcification [Recovering/Resolving]
